FAERS Safety Report 25722665 (Version 1)
Quarter: 2025Q3

REPORT INFORMATION
  Report Type: Spontaneous
  Country: US (occurrence: US)
  Receive Date: 20250825
  Receipt Date: 20250825
  Transmission Date: 20251020
  Serious: Yes (Hospitalization)
  Sender: SINTETICA SA
  Company Number: US-Sintetica SA-2183128

PATIENT
  Age: 49 Year
  Sex: Female

DRUGS (16)
  1. LIDOCAINE [Suspect]
     Active Substance: LIDOCAINE
  2. DIAZEPAM [Concomitant]
     Active Substance: DIAZEPAM
  3. VASOPRESSIN [Concomitant]
     Active Substance: VASOPRESSIN
  4. SODIUM BICARBONATE [Concomitant]
     Active Substance: SODIUM BICARBONATE
  5. RITUXIMAB [Concomitant]
     Active Substance: RITUXIMAB
  6. PREDNISONE [Concomitant]
     Active Substance: PREDNISONE
  7. PHENYLEPHRINE [Concomitant]
     Active Substance: PHENYLEPHRINE
  8. OXYGEN [Concomitant]
     Active Substance: OXYGEN
  9. CITRIC BUFFERED NORMAL SALINE [Concomitant]
     Active Substance: ANHYDROUS CITRIC ACID
  10. NOREPINEPHRINE [Concomitant]
     Active Substance: NOREPINEPHRINE
  11. MAGNESIUM SULFATE [Concomitant]
     Active Substance: MAGNESIUM SULFATE
  12. KCL [Concomitant]
     Active Substance: POTASSIUM CHLORIDE
  13. HYDROXYCHLOROQUINE SULFATE [Suspect]
     Active Substance: HYDROXYCHLOROQUINE SULFATE
  14. HYDROCORTISONE ACETATE [Concomitant]
     Active Substance: HYDROCORTISONE ACETATE
  15. EPINEPHRINE [Concomitant]
     Active Substance: EPINEPHRINE
  16. DOPAMINE [Concomitant]
     Active Substance: DOPAMINE HYDROCHLORIDE

REACTIONS (1)
  - Methaemoglobinaemia [Recovered/Resolved]
